FAERS Safety Report 8520766-9 (Version None)
Quarter: 2012Q3

REPORT INFORMATION
  Report Type: 
  Country: None (occurrence: None)
  Receive Date: 20120719
  Receipt Date: 20120716
  Transmission Date: 20120928
  Serious: Yes (Other)
  Sender: FDA-Public Use
  Company Number: FR-PFIZER INC-2012109603

PATIENT
  Age: 58 Year
  Sex: Female
  Weight: 63 kg

DRUGS (2)
  1. GEMFIBROZIL [Suspect]
     Dosage: 1 TABLET EVERY OTHER DAY
     Dates: end: 20120501
  2. GEMFIBROZIL [Suspect]
     Indication: BLOOD CHOLESTEROL
     Dosage: 1 TABLET DAILY

REACTIONS (3)
  - DEPRESSION [None]
  - ANAEMIA [None]
  - FATIGUE [None]
